FAERS Safety Report 19330212 (Version 1)
Quarter: 2021Q2

REPORT INFORMATION
  Report Type: Spontaneous
  Country: US (occurrence: US)
  Receive Date: 20210528
  Receipt Date: 20210528
  Transmission Date: 20210717
  Serious: Yes (Other)
  Sender: FDA-Public Use
  Company Number: US-PFIZER INC-2021567813

PATIENT
  Age: 58 Year
  Sex: Male
  Weight: 163.72 kg

DRUGS (10)
  1. SIMVASTATIN. [Concomitant]
     Active Substance: SIMVASTATIN
  2. ASPIRINE [Concomitant]
     Active Substance: ASPIRIN
  3. SUTENT [Suspect]
     Active Substance: SUNITINIB MALATE
     Dosage: 50 MG, CYCLIC (DAILY FOR 4 WEEKS THEN 2 WEEKS OFF)
     Route: 048
  4. LISINOPRIL. [Concomitant]
     Active Substance: LISINOPRIL
  5. CLARITINE [Concomitant]
     Active Substance: LORATADINE
  6. FUROSEMIDE. [Concomitant]
     Active Substance: FUROSEMIDE
  7. CARVEDIOL [Concomitant]
     Active Substance: CARVEDILOL
  8. SUTENT [Suspect]
     Active Substance: SUNITINIB MALATE
     Indication: RENAL CANCER
     Dosage: 37.5 MG
  9. OMEPRAZOLE. [Concomitant]
     Active Substance: OMEPRAZOLE
  10. OXYGEN. [Concomitant]
     Active Substance: OXYGEN

REACTIONS (3)
  - Staphylococcal infection [Unknown]
  - Skin lesion [Unknown]
  - Neoplasm progression [Not Recovered/Not Resolved]
